FAERS Safety Report 24856117 (Version 1)
Quarter: 2025Q1

REPORT INFORMATION
  Report Type: Spontaneous
  Country: US (occurrence: None)
  Receive Date: 20250116
  Receipt Date: 20250116
  Transmission Date: 20250409
  Serious: No
  Sender: FDA-CTU
  Company Number: None

PATIENT

DRUGS (2)
  1. METFORMIN HYDROCHLORIDE [Suspect]
     Active Substance: METFORMIN HYDROCHLORIDE
     Route: 048
  2. RISPERDAL [Suspect]
     Active Substance: RISPERIDONE

REACTIONS (7)
  - Muscle spasms [None]
  - Muscle spasms [None]
  - Monoplegia [None]
  - Oral mucosal blistering [None]
  - Rash [None]
  - Blood pressure increased [None]
  - Blood glucose increased [None]
